FAERS Safety Report 8489741-7 (Version None)
Quarter: 2012Q3

REPORT INFORMATION
  Report Type: 
  Country: None (occurrence: None)
  Receive Date: 20120705
  Receipt Date: 20120629
  Transmission Date: 20120928
  Serious: Yes (Other)
  Sender: FDA-Public Use
  Company Number: JP-GLAXOSMITHKLINE-B0812010A

PATIENT
  Age: 4 Decade
  Sex: Male

DRUGS (5)
  1. SEROQUEL [Concomitant]
     Dosage: 1400MG PER DAY
     Route: 048
  2. LAMICTAL [Suspect]
     Indication: BIPOLAR DISORDER
     Route: 048
  3. LAMICTAL [Suspect]
     Dosage: 400MG PER DAY
     Route: 048
     Dates: end: 20120601
  4. ZYPREXA [Concomitant]
     Dosage: 750MG PER DAY
     Route: 048
  5. LITHIUM CARBONATE [Concomitant]
     Dosage: 20MG PER DAY
     Route: 048

REACTIONS (2)
  - ORAL CANDIDIASIS [None]
  - GLOSSODYNIA [None]
